FAERS Safety Report 16810396 (Version 1)
Quarter: 2019Q3

REPORT INFORMATION
  Report Type: Spontaneous
  Country: US (occurrence: US)
  Receive Date: 20190916
  Receipt Date: 20190916
  Transmission Date: 20191005
  Serious: No
  Sender: FDA-Public Use
  Company Number: US-PFIZER INC-2014161308

PATIENT
  Age: 64 Year
  Sex: Male

DRUGS (10)
  1. CLONAZEPAM. [Concomitant]
     Active Substance: CLONAZEPAM
     Dosage: 2 MG, UNK
     Route: 048
  2. MECLIZINE HCI [Concomitant]
     Dosage: 25 MG, 3X/DAY
     Route: 048
  3. SOMA [Concomitant]
     Active Substance: CARISOPRODOL
     Indication: MUSCLE SPASMS
     Dosage: 350 MG, 3XDAY AS NEEDED
     Dates: start: 20140501
  4. MS CONTIN [Concomitant]
     Active Substance: MORPHINE SULFATE
     Indication: PAIN
     Dosage: 15 MG, 1 TABLET EVERY 12 HOURS
     Dates: start: 20140501
  5. METFORMIN HYDROCHLORIDE + GLYBURIDE [Concomitant]
     Active Substance: GLYBURIDE\METFORMIN HYDROCHLORIDE
     Dosage: METFORMIN HYDROCHLORIDE 500MG, GLYBURIDE 2.5MG, 2X/DAY
     Route: 048
     Dates: start: 20140501
  6. LYRICA [Suspect]
     Active Substance: PREGABALIN
     Indication: OSTEOARTHRITIS
  7. COUMADIN [Concomitant]
     Active Substance: WARFARIN SODIUM
     Dosage: 2 MG, 3X/DAY
     Route: 048
  8. OXYCODONE HCI [Concomitant]
     Dosage: 10 MG, QID AS NEEDED (PRN)
     Dates: start: 20140501
  9. LYRICA [Suspect]
     Active Substance: PREGABALIN
     Indication: NEUROPATHY PERIPHERAL
     Dosage: 200 MG, 3X/DAY
     Route: 048
     Dates: start: 20140501
  10. LISINOPRIL. [Concomitant]
     Active Substance: LISINOPRIL
     Dosage: 20 MG, UNK
     Route: 048

REACTIONS (1)
  - Withdrawal syndrome [Unknown]
